FAERS Safety Report 4687898-7 (Version None)
Quarter: 2005Q3

REPORT INFORMATION
  Report Type: 
  Country: None (occurrence: None)
  Receive Date: 20050610
  Receipt Date: 20050511
  Transmission Date: 20060218
  Serious: Yes (Hospitalization)
  Sender: FDA-Public Use
  Company Number: US-GLAXOSMITHKLINE-A0558405A

PATIENT
  Age: 8 Year
  Sex: Male
  Weight: 24 kg

DRUGS (3)
  1. ADVAIR DISKUS 100/50 [Suspect]
     Indication: ASTHMA
     Dosage: 1PUFF TWICE PER DAY
     Route: 055
     Dates: start: 20050503
  2. ZYRTEC [Concomitant]
     Dosage: 10MG PER DAY
  3. SINGULAIR [Concomitant]
     Dosage: 5MG PER DAY

REACTIONS (4)
  - ATELECTASIS [None]
  - CHEST PAIN [None]
  - COUGH [None]
  - SHOULDER PAIN [None]
